FAERS Safety Report 7934580-6 (Version None)
Quarter: 2011Q4

REPORT INFORMATION
  Report Type: 
  Country: None (occurrence: None)
  Receive Date: 20111122
  Receipt Date: 20110831
  Transmission Date: 20120403
  Serious: No
  Sender: FDA-Public Use
  Company Number: US-BAYER-2011-087600

PATIENT
  Age: 82 Year
  Sex: Female
  Weight: 66 kg

DRUGS (2)
  1. ALEVE (CAPLET) [Suspect]
     Indication: OSTEOARTHRITIS
     Dosage: 1 DF, ONCE
     Route: 048
     Dates: start: 20110801
  2. ASPIRIN [Concomitant]

REACTIONS (1)
  - DRUG INEFFECTIVE [None]
